FAERS Safety Report 20471169 (Version 1)
Quarter: 2022Q1

REPORT INFORMATION
  Report Type: Spontaneous
  Country: US (occurrence: US)
  Receive Date: 20220214
  Receipt Date: 20220214
  Transmission Date: 20220423
  Serious: Yes (Other)
  Sender: FDA-Public Use
  Company Number: US-PFIZER INC-2021691682

PATIENT
  Age: 51 Year
  Sex: Female

DRUGS (2)
  1. IBRANCE [Suspect]
     Active Substance: PALBOCICLIB
     Dosage: 100 MG
     Dates: start: 20210517
  2. IBRANCE [Suspect]
     Active Substance: PALBOCICLIB
     Dosage: 125 MG
     Dates: start: 20210609

REACTIONS (13)
  - Lumbar vertebral fracture [Unknown]
  - Fall [Unknown]
  - Product dose omission issue [Unknown]
  - Dry skin [Unknown]
  - Erythema [Unknown]
  - Feeling hot [Unknown]
  - Rash [Unknown]
  - Headache [Unknown]
  - Peripheral swelling [Unknown]
  - Joint stiffness [Unknown]
  - Musculoskeletal stiffness [Unknown]
  - Decreased appetite [Unknown]
  - Neuralgia [Unknown]
